FAERS Safety Report 10404002 (Version 1)
Quarter: 2014Q3

REPORT INFORMATION
  Report Type: Spontaneous
  Country: US (occurrence: US)
  Receive Date: 20140822
  Receipt Date: 20140822
  Transmission Date: 20150326
  Serious: No
  Sender: FDA-Public Use
  Company Number: US-NOVEN-14US009914

PATIENT
  Age: 66 Year
  Sex: Female

DRUGS (3)
  1. PRILOSEC [Concomitant]
     Active Substance: OMEPRAZOLE MAGNESIUM
     Indication: PRODUCT USED FOR UNKNOWN INDICATION
     Dosage: 20 MG, UNK
     Route: 048
  2. MINIVELLE [Suspect]
     Active Substance: ESTRADIOL
     Indication: BLOOD OESTROGEN DECREASED
     Dosage: 0.0375MG/DAY, UNK
     Route: 062
     Dates: start: 201401, end: 201403
  3. MINIVELLE [Suspect]
     Active Substance: ESTRADIOL
     Dosage: 0.075 MG/DAY, FOR 3 DAYS/WK
     Route: 062
     Dates: start: 201403

REACTIONS (14)
  - Paraesthesia [Recovered/Resolved]
  - Anxiety [Not Recovered/Not Resolved]
  - Inappropriate schedule of drug administration [Not Recovered/Not Resolved]
  - Sinusitis [Not Recovered/Not Resolved]
  - Vision blurred [Recovered/Resolved]
  - Arthralgia [Not Recovered/Not Resolved]
  - Nausea [Not Recovered/Not Resolved]
  - Off label use [Not Recovered/Not Resolved]
  - Hot flush [Not Recovered/Not Resolved]
  - Alopecia [Recovered/Resolved]
  - Application site haemorrhage [Not Recovered/Not Resolved]
  - Tinnitus [Not Recovered/Not Resolved]
  - Neck pain [Not Recovered/Not Resolved]
  - Application site ulcer [Not Recovered/Not Resolved]

NARRATIVE: CASE EVENT DATE: 201401
